FAERS Safety Report 17252373 (Version 1)
Quarter: 2020Q1

REPORT INFORMATION
  Report Type: Spontaneous
  Country: US (occurrence: US)
  Receive Date: 20200109
  Receipt Date: 20200109
  Transmission Date: 20200409
  Serious: No
  Sender: FDA-Public Use
  Company Number: US-PFIZER INC-2020009413

PATIENT
  Sex: Female

DRUGS (2)
  1. GABAPENTIN. [Suspect]
     Active Substance: GABAPENTIN
     Indication: PAIN
     Dosage: 1200 MG, DAILY (300 MG, 4 A DAY)
  2. LACTOSE [Suspect]
     Active Substance: LACTOSE
     Dosage: UNK

REACTIONS (3)
  - Muscle spasms [Unknown]
  - Diarrhoea [Unknown]
  - Reaction to excipient [Unknown]
